FAERS Safety Report 8928830 (Version 1)
Quarter: 2012Q4

REPORT INFORMATION
  Report Type: 
  Country: US (occurrence: US)
  Receive Date: 20121128
  Receipt Date: 20121128
  Transmission Date: 20130627
  Serious: No
  Sender: FDA-Public Use
  Company Number: US-009507513-1211USA010588

PATIENT
  Age: 65 Year
  Sex: Male
  Weight: 79.37 kg

DRUGS (4)
  1. VICTRELIS [Suspect]
     Dosage: 4 DF, tid
     Route: 048
  2. SIMVASTATIN TABLETS, USP [Concomitant]
  3. CRESTOR [Concomitant]
  4. VITAMINS (UNSPECIFIED) [Concomitant]

REACTIONS (3)
  - Dyspnoea [Unknown]
  - Decreased appetite [Unknown]
  - Fatigue [Unknown]
